FAERS Safety Report 16925075 (Version 1)
Quarter: 2019Q4

REPORT INFORMATION
  Report Type: Spontaneous
  Country: PH (occurrence: PH)
  Receive Date: 20191016
  Receipt Date: 20191016
  Transmission Date: 20200122
  Serious: Yes (Death, Other)
  Sender: FDA-Public Use
  Company Number: PH-ROCHE-2435321

PATIENT
  Age: 80 Year
  Sex: Female

DRUGS (1)
  1. ACTILYSE [Suspect]
     Active Substance: ALTEPLASE
     Indication: PRODUCT USED FOR UNKNOWN INDICATION
     Dosage: 0.6MG/KG (1 IN 1 ONCE)
     Route: 065

REACTIONS (7)
  - Acute myocardial infarction [Fatal]
  - Electrocardiogram T wave inversion [Unknown]
  - Haemorrhagic transformation stroke [Unknown]
  - Atrial fibrillation [Unknown]
  - Brain herniation [Fatal]
  - Cardiogenic shock [Fatal]
  - NIH stroke scale abnormal [Unknown]
